FAERS Safety Report 4597145-2 (Version None)
Quarter: 2005Q1

REPORT INFORMATION
  Report Type: 
  Country: None (occurrence: None)
  Receive Date: 20050223
  Receipt Date: 20041022
  Transmission Date: 20050727
  Serious: Yes (Other)
  Sender: FDA-Public Use
  Company Number: HQWYE030717JUL03

PATIENT
  Age: 12 Year
  Sex: Male

DRUGS (2)
  1. REFACTO [Suspect]
     Indication: FACTOR VIII DEFICIENCY
     Dosage: 1000 IU 3X PER 1 WK; 1500 IU 2X PER 1 WK
  2. REFACTO [Suspect]

REACTIONS (5)
  - DRUG INEFFECTIVE [None]
  - HAEMARTHROSIS [None]
  - HAEMORRHAGE [None]
  - MUSCLE HAEMORRHAGE [None]
  - UNDERDOSE [None]
